FAERS Safety Report 12174135 (Version 1)
Quarter: 2016Q1

REPORT INFORMATION
  Report Type: Spontaneous
  Country: JP (occurrence: JP)
  Receive Date: 20160314
  Receipt Date: 20160314
  Transmission Date: 20160526
  Serious: Yes (Other)
  Sender: FDA-Public Use
  Company Number: JP-ROCHE-1724527

PATIENT
  Age: 76 Year
  Sex: Male
  Weight: 87 kg

DRUGS (7)
  1. MEDROL [Concomitant]
     Active Substance: METHYLPREDNISOLONE
     Route: 048
     Dates: start: 20111206
  2. ACTEMRA [Suspect]
     Active Substance: TOCILIZUMAB
     Indication: RHEUMATOID ARTHRITIS
     Route: 041
     Dates: start: 20090114, end: 20121009
  3. JZOLOFT [Concomitant]
     Active Substance: SERTRALINE HYDROCHLORIDE
     Dosage: AMOUNT OF 1 ONCE ADMINISTRATION: 25 (UNIT UNCERTAINTY)
     Route: 048
     Dates: start: 20111206
  4. ADALAT CC [Concomitant]
     Active Substance: NIFEDIPINE
     Route: 048
     Dates: start: 20111206
  5. FEBURIC [Concomitant]
     Active Substance: FEBUXOSTAT
     Dosage: AMOUNT OF 1 ONCE ADMINISTRATION: 20 (UNIT UNCERTAINTY)
     Route: 048
     Dates: start: 20111206, end: 20121123
  6. EDIROL [Concomitant]
     Active Substance: ELDECALCITOL
     Route: 048
     Dates: start: 20111206
  7. PROGRAF [Concomitant]
     Active Substance: TACROLIMUS\TACROLIMUS ANHYDROUS
     Dosage: AMOUNT OF 1 ONCE ADMINISTRATION: 3 (UNIT UNCERTAINTY)
     Route: 048
     Dates: start: 20111206, end: 20150507

REACTIONS (4)
  - Nephrotic syndrome [Unknown]
  - Systemic lupus erythematosus [Unknown]
  - Renal failure [Unknown]
  - Lupus nephritis [Not Recovered/Not Resolved]

NARRATIVE: CASE EVENT DATE: 20120816
